FAERS Safety Report 8790719 (Version 1)
Quarter: 2012Q4

REPORT INFORMATION
  Report Type: Spontaneous
  Country: FR (occurrence: None)
  Receive Date: 20120910
  Receipt Date: 20120910
  Transmission Date: 20130627
  Serious: Yes (Hospitalization)
  Sender: FDA-Public Use
  Company Number: TPA2012A06325

PATIENT
  Age: 62 Year
  Sex: Male

DRUGS (3)
  1. ADENURIC [Suspect]
     Route: 048
     Dates: start: 20120606, end: 20120731
  2. DIAMICRON [Suspect]
     Route: 048
     Dates: start: 20120606, end: 20120731
  3. STAGID [Suspect]
     Route: 048
     Dates: start: 20120322, end: 20120731

REACTIONS (3)
  - Thermal burn [None]
  - Exfoliative rash [None]
  - Rash erythematous [None]
